FAERS Safety Report 11361874 (Version 1)
Quarter: 2015Q3

REPORT INFORMATION
  Report Type: Spontaneous
  Country: US (occurrence: US)
  Receive Date: 20150810
  Receipt Date: 20150810
  Transmission Date: 20151125
  Serious: Yes (Other)
  Sender: FDA-Public Use
  Company Number: US-PFIZER INC-2015261175

PATIENT
  Age: 27 Year
  Sex: Male
  Weight: 75 kg

DRUGS (2)
  1. NEURONTIN [Suspect]
     Active Substance: GABAPENTIN
     Indication: RESTLESS LEGS SYNDROME
     Dosage: 300 MG, DAILY
     Route: 048
     Dates: start: 201407
  2. NEURONTIN [Suspect]
     Active Substance: GABAPENTIN
     Indication: DEPRESSION
     Dosage: 900 MG, DAILY, ONE CAPSULE AT DINNER, 2 CAPSULES AT BEDTIME
     Route: 048
     Dates: end: 201507

REACTIONS (9)
  - Product use issue [Unknown]
  - Neuropathy peripheral [Not Recovered/Not Resolved]
  - Urinary retention [Unknown]
  - Fluid retention [Unknown]
  - Weight increased [Unknown]
  - Dysuria [Unknown]
  - Lymphocyte count increased [Unknown]
  - Haemoglobin decreased [Unknown]
  - Drug ineffective [Unknown]

NARRATIVE: CASE EVENT DATE: 201407
